FAERS Safety Report 26035339 (Version 1)
Quarter: 2025Q4

REPORT INFORMATION
  Report Type: Spontaneous
  Country: US (occurrence: None)
  Receive Date: 20251112
  Receipt Date: 20251112
  Transmission Date: 20260118
  Serious: Yes (Disabling, Other)
  Sender: FDA-CTU
  Company Number: None

PATIENT
  Age: 51 Year
  Sex: Female
  Weight: 57.6 kg

DRUGS (1)
  1. CEQUA [Suspect]
     Active Substance: CYCLOSPORINE
     Indication: Dry eye
     Dosage: OTHER QUANTITY : 1 DROP(S);?FREQUENCY : TWICE A DAY;?
     Route: 047

REACTIONS (12)
  - Eye pain [None]
  - Eye movement disorder [None]
  - Strabismus [None]
  - Ocular hyperaemia [None]
  - Hordeolum [None]
  - Eyelid margin crusting [None]
  - Eye swelling [None]
  - Dry eye [None]
  - Vision blurred [None]
  - Lacrimation increased [None]
  - Eye infection [None]
  - Condition aggravated [None]

NARRATIVE: CASE EVENT DATE: 20251111
